FAERS Safety Report 5834637-X (Version None)
Quarter: 2008Q3

REPORT INFORMATION
  Report Type: 
  Country: None (occurrence: None)
  Receive Date: 20080805
  Receipt Date: 20080725
  Transmission Date: 20090109
  Serious: Yes (Other)
  Sender: FDA-Public Use
  Company Number: US-WYE-H04644908

PATIENT
  Sex: Female
  Weight: 63.56 kg

DRUGS (1)
  1. EFFEXOR [Suspect]
     Indication: PREMENSTRUAL SYNDROME
     Dosage: UNKNOWN
     Dates: start: 20060627

REACTIONS (1)
  - DRUG DEPENDENCE [None]
